FAERS Safety Report 11197185 (Version 1)
Quarter: 2015Q2

REPORT INFORMATION
  Report Type: Spontaneous
  Country: US (occurrence: US)
  Receive Date: 20150617
  Receipt Date: 20150617
  Transmission Date: 20150821
  Serious: No
  Sender: FDA-Public Use
  Company Number: US-SA-2014SA092598

PATIENT
  Age: 57 Year
  Sex: Female
  Weight: 78.19 kg

DRUGS (8)
  1. SODIUM CHLORIDE. [Concomitant]
     Active Substance: SODIUM CHLORIDE
  2. EPIPEN [Concomitant]
     Active Substance: EPINEPHRINE
  3. PREDNISONE. [Concomitant]
     Active Substance: PREDNISONE
  4. DIPHENHYDRAMINE [Concomitant]
     Active Substance: DIPHENHYDRAMINE
  5. METOPROLOL [Concomitant]
     Active Substance: METOPROLOL
  6. NORMAL SALINE [Concomitant]
     Active Substance: SODIUM CHLORIDE
  7. WATER. [Concomitant]
     Active Substance: WATER
  8. CEREZYME [Suspect]
     Active Substance: IMIGLUCERASE
     Indication: GAUCHER^S DISEASE
     Dosage: DOSE:61.3 UNIT(S)/KILOGRAM BODYWEIGHT
     Route: 042
     Dates: start: 20110318

REACTIONS (1)
  - Fall [Unknown]
